FAERS Safety Report 4890601-9 (Version None)
Quarter: 2006Q1

REPORT INFORMATION
  Report Type: 
  Country: None (occurrence: None)
  Receive Date: 20060123
  Receipt Date: 20060109
  Transmission Date: 20060701
  Serious: Yes (Other)
  Sender: FDA-Public Use
  Company Number: US200601001358

PATIENT
  Age: 85 Year
  Sex: Female

DRUGS (2)
  1. FORTEO [Suspect]
     Indication: OSTEOPOROSIS
     Dates: start: 20051101
  2. FORTEO (250MCG;ML) (FORTEO PEN 250MCG/ML (3ML)) PEN, DISPOSABLE [Concomitant]

REACTIONS (2)
  - DEAFNESS [None]
  - PHARMACEUTICAL PRODUCT COMPLAINT [None]
